FAERS Safety Report 9185084 (Version 1)
Quarter: 2012Q4

REPORT INFORMATION
  Report Type: 
  Country: US (occurrence: US)
  Receive Date: 20121101
  Receipt Date: 20121101
  Transmission Date: 20130627
  Serious: No
  Sender: FDA-Public Use
  Company Number: US-PFIZER INC-2012270819

PATIENT
  Age: 76 Year
  Sex: Female
  Weight: 63 kg

DRUGS (2)
  1. RAMIPRIL [Suspect]
     Indication: BLOOD PRESSURE HIGH
     Dosage: 10 mg, two times a day
  2. DILTIAZEM HYDROCHLORIDE [Suspect]
     Indication: BLOOD PRESSURE HIGH
     Dosage: 300 mg, daily

REACTIONS (1)
  - Drug ineffective [Unknown]
